FAERS Safety Report 25120713 (Version 4)
Quarter: 2025Q2

REPORT INFORMATION
  Report Type: Spontaneous
  Country: DE (occurrence: DE)
  Receive Date: 20250325
  Receipt Date: 20250519
  Transmission Date: 20250716
  Serious: Yes (Other)
  Sender: GILEAD
  Company Number: DE-PEI-202500006694

PATIENT
  Age: 59 Year
  Sex: Male

DRUGS (1)
  1. YESCARTA [Suspect]
     Active Substance: AXICABTAGENE CILOLEUCEL
     Indication: Lymphoma
     Route: 065
     Dates: start: 20250227

REACTIONS (6)
  - Tumour pseudoprogression [Not Recovered/Not Resolved]
  - Transient ischaemic attack [Not Recovered/Not Resolved]
  - Cerebrospinal fluid retention [Not Recovered/Not Resolved]
  - Hemiparesis [Not Recovered/Not Resolved]
  - Somnolence [Not Recovered/Not Resolved]
  - Immune effector cell-associated haematotoxicity [Recovered/Resolved]

NARRATIVE: CASE EVENT DATE: 20250302
